FAERS Safety Report 6143249-2 (Version None)
Quarter: 2009Q2

REPORT INFORMATION
  Report Type: 
  Country: None (occurrence: None)
  Receive Date: 20090403
  Receipt Date: 20090325
  Transmission Date: 20091009
  Serious: Yes (Hospitalization, Disabling)
  Sender: FDA-Public Use
  Company Number: US-MERCK-0810USA03095

PATIENT
  Age: 56 Year
  Sex: Female

DRUGS (2)
  1. FOSAMAX [Suspect]
     Indication: OSTEOPOROSIS
     Route: 048
     Dates: end: 20070101
  2. FOSAMAX [Suspect]
     Route: 048
     Dates: start: 19960101, end: 20061201

REACTIONS (19)
  - ABSCESS [None]
  - ANORECTAL DISCOMFORT [None]
  - ARTHRITIS [None]
  - ASTHMA [None]
  - DIABETES MELLITUS [None]
  - DIZZINESS [None]
  - HYPERCHOLESTEROLAEMIA [None]
  - HYPERTENSION [None]
  - INSOMNIA [None]
  - JAW DISORDER [None]
  - JOINT SWELLING [None]
  - NECROTISING FASCIITIS [None]
  - OROPHARYNGEAL PAIN [None]
  - OSTEONECROSIS [None]
  - PAIN [None]
  - SEASONAL ALLERGY [None]
  - SPONDYLOLISTHESIS [None]
  - TOOTH DISORDER [None]
  - TRISMUS [None]
